FAERS Safety Report 6914544-1 (Version None)
Quarter: 2010Q3

REPORT INFORMATION
  Report Type: 
  Country: None (occurrence: None)
  Receive Date: 20100809
  Receipt Date: 20100728
  Transmission Date: 20110219
  Serious: Yes (Other)
  Sender: FDA-Public Use
  Company Number: US-ELI_LILLY_AND_COMPANY-US201006003290

PATIENT
  Sex: Female

DRUGS (16)
  1. BYETTA [Suspect]
     Indication: TYPE 2 DIABETES MELLITUS
     Dosage: 10 UG, 2/D
     Route: 058
     Dates: start: 20100118, end: 20100318
  2. ACE INHIBITORS [Concomitant]
  3. SPIRONOLACTONE [Concomitant]
     Dosage: 25 MG, DAILY (1/D)
     Route: 048
  4. ZETIA [Concomitant]
     Dosage: 10 MG, DAILY (1/D)
     Route: 048
  5. WELCHOL [Concomitant]
     Dosage: 625 MG, 2/D
     Route: 048
  6. VITAMIN D [Concomitant]
     Dosage: 50000 IU, WEEKLY (1/W)
     Route: 048
  7. VITAMIN D [Concomitant]
     Dosage: 1000 IU, 3/D
     Route: 048
  8. COREG [Concomitant]
     Dosage: 25 MG, 2/D
     Route: 048
  9. ALTACE [Concomitant]
     Dosage: 10 MG, 2/D
     Route: 048
  10. VITAMIN B COMPLEX CAP [Concomitant]
     Dosage: UNK, DAILY (1/D)
  11. GLIPIZIDE [Concomitant]
     Dosage: 10 MG, DAILY (1/D)
     Route: 048
  12. ASPIRIN [Concomitant]
     Dosage: UNK, DAILY (1/D)
  13. ZYRTEC [Concomitant]
     Dosage: 10 MG, DAILY (1/D)
     Route: 048
  14. NASACORT [Concomitant]
     Dosage: UNK, DAILY (1/D)
     Route: 045
  15. PRILOSEC [Concomitant]
     Dosage: 20 MG, DAILY (1/D)
     Route: 048
  16. BENTYL [Concomitant]
     Dosage: 20 MG, 4/D
     Route: 048

REACTIONS (5)
  - ABDOMINAL PAIN [None]
  - BLOOD AMYLASE INCREASED [None]
  - BLOOD CHOLESTEROL INCREASED [None]
  - HYPERTRIGLYCERIDAEMIA [None]
  - PANCREATITIS [None]
